FAERS Safety Report 19930495 (Version 1)
Quarter: 2021Q4

REPORT INFORMATION
  Report Type: Spontaneous
  Country: US (occurrence: US)
  Receive Date: 20211007
  Receipt Date: 20211007
  Transmission Date: 20220303
  Serious: No
  Sender: FDA-Public Use
  Company Number: US-TAKEDA-2021TUS060390

PATIENT
  Age: 71 Year
  Sex: Female
  Weight: 50.34 kg

DRUGS (1)
  1. CUVITRU [Suspect]
     Active Substance: HUMAN IMMUNOGLOBULIN G
     Indication: Combined immunodeficiency
     Dosage: 8 GRAM
     Route: 058

REACTIONS (3)
  - Infusion site erythema [Unknown]
  - Infusion site swelling [Unknown]
  - Pruritus [Unknown]
